FAERS Safety Report 7474688-5 (Version None)
Quarter: 2011Q2

REPORT INFORMATION
  Report Type: 
  Country: None (occurrence: None)
  Receive Date: 20110505
  Receipt Date: 20110421
  Transmission Date: 20111010
  Serious: Yes (Other)
  Sender: FDA-Public Use
  Company Number: 031770

PATIENT
  Age: 7 Year
  Sex: Male

DRUGS (3)
  1. PHENOBARBITAL TAB [Concomitant]
  2. LAMOTRIGINE [Concomitant]
  3. LACOSAMIDE [Suspect]
     Indication: STURGE-WEBER SYNDROME
     Dosage: (50 MG, 2 MG/KG/B), (UPTITRATION BY 2MG/KG; INTERVAL OF 4  WEEKS), (10.4 MG/KG)

REACTIONS (6)
  - OFF LABEL USE [None]
  - APHASIA [None]
  - CONVULSION [None]
  - PANIC ATTACK [None]
  - ENURESIS [None]
  - CONDITION AGGRAVATED [None]
